FAERS Safety Report 8581228-6 (Version None)
Quarter: 2012Q3

REPORT INFORMATION
  Report Type: 
  Country: None (occurrence: None)
  Receive Date: 20120809
  Receipt Date: 20120806
  Transmission Date: 20120928
  Serious: Yes (Other)
  Sender: FDA-Public Use
  Company Number: PHHY2012BR046695

PATIENT
  Sex: Female
  Weight: 31 kg

DRUGS (8)
  1. PHENOBARBITAL TAB [Concomitant]
     Indication: CONVULSION
     Dosage: 1 DF, BID (1 TABLET IN THE MORNING AND1 TABLET AT NIGHT)
     Route: 048
  2. TRILEPTAL [Suspect]
     Indication: CONVULSION
     Dosage: 5 ML, TID
  3. LAMOTRIGINE [Concomitant]
     Indication: CONVULSION
     Dosage: 0.5 DF, BID (HALF TABLET IN MORNING, HALF TABLET AT NIGHT)
     Route: 048
  4. LEVOTHYROXINE SODIUM [Concomitant]
     Indication: CONGENITAL HYPOTHYROIDISM
  5. OXCARBAZEPINE [Suspect]
     Indication: CONVULSION
     Dosage: 7.5 ML, BID
  6. TRILEPTAL [Suspect]
     Dosage: 7.5 ML, BID
  7. CLOBAZAM [Concomitant]
     Indication: CONVULSION
     Dosage: 1 DF, QD/ 1TABLET AT NIGHT
     Route: 048
  8. PHENYTOIN [Concomitant]
     Indication: CONVULSION
     Dosage: 2 DF, (HALF TABLET IN THE MORNING, 1 TABLET IN THE AFTERNOON AND HALF TABLET AT NIGHT)
     Route: 048

REACTIONS (3)
  - CONVULSION [None]
  - INSOMNIA [None]
  - PARALYSIS [None]
